FAERS Safety Report 8427837-6 (Version None)
Quarter: 2012Q2

REPORT INFORMATION
  Report Type: 
  Country: None (occurrence: None)
  Receive Date: 20120611
  Receipt Date: 20120601
  Transmission Date: 20120825
  Serious: Yes (Other)
  Sender: FDA-Public Use
  Company Number: US-ASTRAZENECA-2007UW15927

PATIENT
  Sex: Female
  Weight: 81.6 kg

DRUGS (3)
  1. ASPIRIN [Concomitant]
  2. VITAMIN TAB [Concomitant]
  3. ARIMIDEX [Suspect]
     Indication: BREAST CANCER
     Route: 048
     Dates: start: 20070201

REACTIONS (17)
  - PARAESTHESIA [None]
  - PAIN IN EXTREMITY [None]
  - PAIN [None]
  - MYALGIA [None]
  - COUGH [None]
  - MUSCULOSKELETAL PAIN [None]
  - BONE DISORDER [None]
  - MUSCULAR WEAKNESS [None]
  - ALOPECIA [None]
  - OFF LABEL USE [None]
  - ARTHRALGIA [None]
  - JOINT SWELLING [None]
  - TRIGGER FINGER [None]
  - CATARACT [None]
  - FATIGUE [None]
  - COUNTERFEIT DRUG ADMINISTERED [None]
  - AMNESIA [None]
